FAERS Safety Report 10561908 (Version 1)
Quarter: 2014Q4

REPORT INFORMATION
  Report Type: Spontaneous
  Country: BE (occurrence: BE)
  Receive Date: 20141104
  Receipt Date: 20141104
  Transmission Date: 20150529
  Serious: Yes (Other)
  Sender: FDA-Public Use
  Company Number: BE-ROCHE-1483730

PATIENT
  Age: 67 Year
  Sex: Female

DRUGS (7)
  1. VENTOLIN [Concomitant]
     Active Substance: ALBUTEROL SULFATE
  2. PANTOMED (BELGIUM) [Concomitant]
  3. XOLAIR [Suspect]
     Active Substance: OMALIZUMAB
     Indication: ASTHMA
     Route: 065
  4. SERETIDE [Concomitant]
     Active Substance: FLUTICASONE FUROATE\SALMETEROL XINAFOATE
  5. XOLAIR [Suspect]
     Active Substance: OMALIZUMAB
     Route: 065
     Dates: start: 201105
  6. NASONEX [Concomitant]
     Active Substance: MOMETASONE FUROATE
  7. RUPATALL [Concomitant]

REACTIONS (6)
  - Concomitant disease progression [Unknown]
  - Asthma [Recovered/Resolved]
  - Rheumatic disorder [Not Recovered/Not Resolved]
  - Influenza like illness [Unknown]
  - Arthritis [Not Recovered/Not Resolved]
  - Cutaneous lupus erythematosus [Not Recovered/Not Resolved]

NARRATIVE: CASE EVENT DATE: 201202
